FAERS Safety Report 5846793-8 (Version None)
Quarter: 2008Q3

REPORT INFORMATION
  Report Type: 
  Country: None (occurrence: None)
  Receive Date: 20080815
  Receipt Date: 20080806
  Transmission Date: 20090109
  Serious: Yes (Hospitalization, Disabling)
  Sender: FDA-Public Use
  Company Number: ES-MERCK-0807ESP00033

PATIENT
  Age: 52 Year
  Sex: Male
  Weight: 62 kg

DRUGS (11)
  1. ISENTRESS [Suspect]
     Indication: HIV INFECTION
     Route: 048
     Dates: start: 20080226
  2. ISENTRESS [Suspect]
     Indication: MULTIPLE-DRUG RESISTANCE
     Route: 048
     Dates: start: 20080226
  3. PREZISTA [Concomitant]
     Indication: HIV INFECTION
     Route: 065
     Dates: start: 20080226
  4. MARAVIROC [Concomitant]
     Indication: HIV INFECTION
     Route: 048
     Dates: start: 20080226
  5. TRUVADA [Concomitant]
     Indication: HIV INFECTION
     Route: 065
     Dates: start: 20070710
  6. NORVIR [Concomitant]
     Indication: HIV INFECTION
     Route: 065
     Dates: start: 20060217
  7. TMC-125 [Concomitant]
     Indication: HIV INFECTION
     Route: 065
     Dates: start: 20080226
  8. VENTOLIN [Concomitant]
     Route: 065
  9. SPIRIVA [Concomitant]
     Route: 065
  10. PLUSVENT [Concomitant]
     Route: 065
  11. SEPTRIN [Concomitant]
     Indication: PROPHYLAXIS
     Route: 065

REACTIONS (4)
  - AMYOTROPHY [None]
  - LOWER RESPIRATORY TRACT INFECTION BACTERIAL [None]
  - MYOPATHY [None]
  - TYPE 2 DIABETES MELLITUS [None]
